FAERS Safety Report 17785550 (Version 2)
Quarter: 2020Q2

REPORT INFORMATION
  Report Type: Spontaneous
  Country: MX (occurrence: MX)
  Receive Date: 20200513
  Receipt Date: 20200604
  Transmission Date: 20200714
  Serious: Yes (Other)
  Sender: FDA-Public Use
  Company Number: MX-BIOMARINAP-MX-2020-130135

PATIENT
  Age: 9 Year
  Sex: Male
  Weight: 16.5 kg

DRUGS (1)
  1. NAGLAZYME [Suspect]
     Active Substance: GALSULFASE
     Indication: MUCOPOLYSACCHARIDOSIS VI
     Dosage: 15 MILLIGRAM, QW
     Route: 042
     Dates: start: 20131210

REACTIONS (4)
  - Hernia repair [Recovered/Resolved]
  - Oral surgery [Recovered/Resolved]
  - Hypoacusis [Recovered/Resolved]
  - Visual impairment [Recovered/Resolved]

NARRATIVE: CASE EVENT DATE: 20140723
